FAERS Safety Report 5866368-4 (Version None)
Quarter: 2008Q3

REPORT INFORMATION
  Report Type: 
  Country: None (occurrence: None)
  Receive Date: 20080901
  Receipt Date: 20080623
  Transmission Date: 20090109
  Serious: No
  Sender: FDA-Public Use
  Company Number: US-BAYER-200827206NA

PATIENT
  Sex: Female

DRUGS (3)
  1. MIRENA [Suspect]
     Indication: DRUG USE FOR UNKNOWN INDICATION
     Route: 015
     Dates: start: 20080623
  2. DEPAKOTE [Concomitant]
  3. LEVOTHYROXINE [Concomitant]

REACTIONS (2)
  - CARDIAC MURMUR [None]
  - CHEST PAIN [None]
